FAERS Safety Report 5832291-4 (Version None)
Quarter: 2008Q3

REPORT INFORMATION
  Report Type: 
  Country: None (occurrence: None)
  Receive Date: 20080804
  Receipt Date: 20080730
  Transmission Date: 20090109
  Serious: Yes (Other)
  Sender: FDA-Public Use
  Company Number: A0731743A

PATIENT
  Age: 68 Year
  Sex: Male

DRUGS (9)
  1. AVODART [Suspect]
     Indication: BENIGN PROSTATIC HYPERPLASIA
     Dosage: .5MG PER DAY
     Route: 048
     Dates: start: 20080401
  2. FUROSEMIDE [Suspect]
     Dosage: 40MG PER DAY
     Route: 048
  3. METOPROLOL [Concomitant]
  4. POTASSIUM CHLORIDE [Concomitant]
  5. ALPRAZOLAM [Concomitant]
  6. ZETIA [Concomitant]
  7. QUINAPRIL [Concomitant]
  8. MULTI-VITAMIN [Concomitant]
  9. UNSPECIFIED MEDICATION [Concomitant]

REACTIONS (12)
  - CONTUSION [None]
  - CYST [None]
  - DRUG INEFFECTIVE [None]
  - DYSURIA [None]
  - FALL [None]
  - LIBIDO DECREASED [None]
  - LOCAL SWELLING [None]
  - OEDEMA PERIPHERAL [None]
  - PAIN IN EXTREMITY [None]
  - PRURITUS [None]
  - UPPER LIMB FRACTURE [None]
  - URINE FLOW DECREASED [None]
